FAERS Safety Report 24867059 (Version 1)
Quarter: 2025Q1

REPORT INFORMATION
  Report Type: Spontaneous
  Country: IL (occurrence: IL)
  Receive Date: 20250121
  Receipt Date: 20250121
  Transmission Date: 20250408
  Serious: Yes (Other)
  Sender: RHYTHM PHARMACEUTICALS, INC.
  Company Number: IL-Rhythm Pharmaceuticals, Inc.-2025RHM000009

PATIENT
  Age: 15 Year
  Sex: Male
  Weight: 140 kg

DRUGS (1)
  1. IMCIVREE [Suspect]
     Active Substance: SETMELANOTIDE
     Indication: Laurence-Moon-Bardet-Biedl syndrome
     Route: 058
     Dates: start: 20241223, end: 20250101

REACTIONS (3)
  - Seizure [Unknown]
  - Vomiting [Unknown]
  - Diarrhoea [Unknown]
